FAERS Safety Report 17153641 (Version 1)
Quarter: 2019Q4

REPORT INFORMATION
  Report Type: Spontaneous
  Country: SE (occurrence: SE)
  Receive Date: 20191213
  Receipt Date: 20191213
  Transmission Date: 20200122
  Serious: Yes (Hospitalization)
  Sender: FDA-Public Use
  Company Number: SE-NAPPMUNDI-GBR-2019-0073610

PATIENT
  Age: 36 Year
  Sex: Female

DRUGS (16)
  1. BUPRENORPHINE. [Suspect]
     Active Substance: BUPRENORPHINE
     Indication: DRUG DEPENDENCE
     Dosage: UNK (UPPTRAPPNINGSDOS TILL 5 MG DAGLIGEN)
     Route: 065
  2. DULOXETINE. [Concomitant]
     Active Substance: DULOXETINE
     Dosage: 60 UNK, DAILY
     Route: 048
     Dates: start: 20171007
  3. THERALEN [Concomitant]
     Active Substance: TRIMEPRAZINE
     Dosage: 1 UNK, PRN (0,5 - 1 ML X 1 - 2 VB 1)
     Dates: start: 20191016
  4. LERGIGAN                           /00033002/ [Concomitant]
     Active Substance: PROMETHAZINE HYDROCHLORIDE
     Dosage: 25 MG, PRN (1 TABLETT X 1 - 2 VB)
     Dates: start: 20171225
  5. BUPRENORPHINE. [Suspect]
     Active Substance: BUPRENORPHINE
     Indication: DRUG DEPENDENCE
     Dosage: 16 MG, WEEKLY (16 MG 1/VECKA)
     Route: 058
     Dates: start: 20191015, end: 20191021
  6. ALVEDON [Concomitant]
     Active Substance: ACETAMINOPHEN
     Dosage: UNK, PRN (1 - 2 TABLETTER VB MAX 8/DAG 1)
     Route: 048
     Dates: start: 20171225
  7. GAVISCON                           /00237601/ [Concomitant]
     Active Substance: ALUMINUM HYDROXIDE\MAGNESIUM CARBONATE
     Route: 048
     Dates: start: 20191011
  8. CYKLOKAPRON [Concomitant]
     Active Substance: TRANEXAMIC ACID
     Dosage: 1 UNK, PRN (1 - 2 VB MAX 8/DAG 1)
     Route: 048
     Dates: start: 20190221
  9. GABAPENTIN. [Concomitant]
     Active Substance: GABAPENTIN
     Dosage: 1800 MG, DAILY
     Route: 048
     Dates: start: 20191016
  10. FURIX [Concomitant]
     Dosage: 40 MG, DAILY
     Route: 048
     Dates: start: 20191016
  11. DULOXETINE. [Concomitant]
     Active Substance: DULOXETINE
     Dosage: 1 UNK, DAILY
     Route: 048
     Dates: start: 20181206
  12. BEVIPLEX                           /00322001/ [Concomitant]
     Dosage: 1 UNK, DAILY
     Route: 048
     Dates: start: 20180321
  13. ESOMEPRAZOLE. [Concomitant]
     Active Substance: ESOMEPRAZOLE MAGNESIUM
     Dosage: 20 MG, UNK
     Route: 048
     Dates: start: 20180215
  14. MIRENA [Concomitant]
     Active Substance: LEVONORGESTREL
     Route: 015
     Dates: start: 20190221
  15. KALCIPOS-D [Concomitant]
     Active Substance: CALCIUM CARBONATE\CHOLECALCIFEROL
     Dosage: 1 DF, DAILY
     Route: 048
     Dates: start: 20171225
  16. IMOVANE [Concomitant]
     Active Substance: ZOPICLONE
     Dosage: 7.5 MG, PRN (1 TABL TN VB)

REACTIONS (2)
  - Skin ulcer [Not Recovered/Not Resolved]
  - Oedema peripheral [Not Recovered/Not Resolved]

NARRATIVE: CASE EVENT DATE: 20191020
